FAERS Safety Report 25631100 (Version 2)
Quarter: 2025Q3

REPORT INFORMATION
  Report Type: Spontaneous
  Country: US (occurrence: US)
  Receive Date: 20250801
  Receipt Date: 20250814
  Transmission Date: 20251020
  Serious: Yes (Life-Threatening, Hospitalization, Other)
  Sender: ALKEM
  Company Number: None

PATIENT
  Age: 66 Year
  Sex: Male

DRUGS (2)
  1. MYCOPHENOLATE MOFETIL [Suspect]
     Active Substance: MYCOPHENOLATE MOFETIL
     Indication: Immunosuppressant drug therapy
     Route: 065
  2. TACROLIMUS [Suspect]
     Active Substance: TACROLIMUS
     Indication: Immunosuppressant drug therapy
     Route: 065

REACTIONS (8)
  - Troponin increased [Unknown]
  - Respiratory failure [Unknown]
  - Legionella infection [Unknown]
  - Pneumonia [Unknown]
  - Pancytopenia [Unknown]
  - Blood creatinine increased [Unknown]
  - Coagulopathy [Unknown]
  - Metabolic acidosis [Unknown]
